FAERS Safety Report 4318582-7 (Version None)
Quarter: 2004Q1

REPORT INFORMATION
  Report Type: 
  Country: None (occurrence: None)
  Receive Date: 20040316
  Receipt Date: 20040316
  Transmission Date: 20041129
  Serious: Yes (Other)
  Sender: FDA-Public Use
  Company Number: None

PATIENT
  Age: 25 Year
  Sex: Male
  Weight: 47 kg

DRUGS (7)
  1. LEVOFLOXACIN [Suspect]
     Dosage: 500 MG PO
     Route: 048
     Dates: start: 20040204
  2. KCL TAB [Concomitant]
  3. MG [Concomitant]
  4. CYSTERMINE EYE DROPS [Concomitant]
  5. BICITRA [Concomitant]
  6. IRON [Concomitant]
  7. DARBEPOETIN [Concomitant]

REACTIONS (2)
  - PRURITUS [None]
  - URTICARIA [None]
